FAERS Safety Report 14236372 (Version 4)
Quarter: 2019Q4

REPORT INFORMATION
  Report Type: Report from Study
  Country: US (occurrence: US)
  Receive Date: 20171129
  Receipt Date: 20191202
  Transmission Date: 20200122
  Serious: Yes (Death, Other)
  Sender: FDA-Public Use
  Company Number: US-ASTELLAS-2017US042238

PATIENT
  Age: 80 Year
  Sex: Male

DRUGS (1)
  1. ENZALUTAMIDE [Suspect]
     Active Substance: ENZALUTAMIDE
     Indication: HORMONE-REFRACTORY PROSTATE CANCER
     Route: 048
     Dates: start: 20170101

REACTIONS (5)
  - Diarrhoea [Recovered/Resolved]
  - Death [Fatal]
  - Mood swings [Unknown]
  - Dementia [Unknown]
  - Irritability [Unknown]

NARRATIVE: CASE EVENT DATE: 20170913
